FAERS Safety Report 5301442-2 (Version None)
Quarter: 2007Q2

REPORT INFORMATION
  Report Type: 
  Country: None (occurrence: None)
  Receive Date: 20070418
  Receipt Date: 20070413
  Transmission Date: 20071010
  Serious: Yes (Other)
  Sender: FDA-Public Use
  Company Number: US-PFIZER INC-2007008312

PATIENT
  Sex: Female
  Weight: 54.4 kg

DRUGS (5)
  1. XALATAN [Suspect]
     Indication: GLAUCOMA
     Route: 047
  2. XALATAN [Suspect]
     Indication: MACULAR DEGENERATION
  3. XALATAN [Suspect]
     Indication: MEDICAL DEVICE IMPLANTATION
  4. NORVASC [Suspect]
  5. ZYRTEC [Suspect]
     Indication: PRURITUS

REACTIONS (4)
  - CARDIAC PACEMAKER INSERTION [None]
  - DRUG INEFFECTIVE [None]
  - EYE OPERATION [None]
  - PRURITUS [None]
